FAERS Safety Report 18088223 (Version 1)
Quarter: 2020Q3

REPORT INFORMATION
  Report Type: Spontaneous
  Country: GB (occurrence: GB)
  Receive Date: 20200729
  Receipt Date: 20200729
  Transmission Date: 20201103
  Serious: Yes (Hospitalization)
  Sender: FDA-Public Use
  Company Number: GB-TEVA-2020-GB-1806283

PATIENT
  Age: 89 Year
  Sex: Female

DRUGS (11)
  1. MOXONIDINE [Suspect]
     Active Substance: MOXONIDINE
     Dosage: 600MCG
     Route: 048
  2. SIMVASTATIN. [Concomitant]
     Active Substance: SIMVASTATIN
     Dosage: 10MG ? ON
     Route: 048
  3. DICLOFENAC DIETHYLAMINE [Concomitant]
     Active Substance: DICLOFENAC DIETHYLAMINE
     Dosage: 3 DOSAGE FORMS, PRN
     Route: 061
  4. FUROSEMIDE. [Suspect]
     Active Substance: FUROSEMIDE
     Dosage: 20MG
     Route: 048
     Dates: end: 20200702
  5. SALBUTAMOL [Concomitant]
     Active Substance: ALBUTEROL
     Dosage: 100MICROGRAM, ONE OR TWO QDS PRN
     Route: 055
  6. SALMETEROL AND FLUTICASONE [Concomitant]
     Active Substance: FLUTICASONE PROPIONATE\SALMETEROL XINAFOATE
     Dosage: 4 DOSAGE FORMS, 250MCG/25MCG
     Route: 055
  7. COCODAMOL [Suspect]
     Active Substance: ACETAMINOPHEN\CODEINE PHOSPHATE
     Dosage: ONE OR TWO QDS PRN 30/500MG
     Route: 048
     Dates: end: 20200702
  8. DOXAZOSIN [Suspect]
     Active Substance: DOXAZOSIN MESYLATE
     Dosage: 2MG
     Route: 048
  9. SPIRONOLACTONE. [Suspect]
     Active Substance: SPIRONOLACTONE
     Dosage: 25MG
     Route: 048
     Dates: end: 20200702
  10. VERAPAMIL [Suspect]
     Active Substance: VERAPAMIL HYDROCHLORIDE
     Dosage: 240MG
     Route: 048
  11. CALCIUM AND COLECALCIFEROL [Concomitant]
     Dosage: 4 DOSAGE FORMS, 200UNIT/750MG
     Route: 048

REACTIONS (3)
  - Dizziness [Recovered/Resolved]
  - Fall [Recovering/Resolving]
  - Orthostatic hypotension [Recovering/Resolving]

NARRATIVE: CASE EVENT DATE: 20200702
